FAERS Safety Report 7039208-8 (Version None)
Quarter: 2010Q3

REPORT INFORMATION
  Report Type: 
  Country: None (occurrence: None)
  Receive Date: 20100927
  Receipt Date: 20100820
  Transmission Date: 20110219
  Serious: No
  Sender: FDA-Public Use
  Company Number: US-WYE-H17076510

PATIENT

DRUGS (1)
  1. TORISEL [Suspect]

REACTIONS (1)
  - EOSINOPHIL COUNT INCREASED [None]
